FAERS Safety Report 10650700 (Version 1)
Quarter: 2014Q4

REPORT INFORMATION
  Report Type: Spontaneous
  Country: US (occurrence: US)
  Receive Date: 20141214
  Receipt Date: 20141214
  Transmission Date: 20150529
  Serious: No
  Sender: FDA-Public Use
  Company Number: US-BAUSCH-SYM-2014-22282

PATIENT
  Sex: Female

DRUGS (1)
  1. XENAZINE [Suspect]
     Active Substance: TETRABENAZINE
     Indication: TARDIVE DYSKINESIA
     Dosage: 3 TABLETS IN THE MORNINGS, 2 TABLETS AT NOON, AND 2 TABLETS IN THE EVENING
     Route: 048

REACTIONS (2)
  - Amnesia [Unknown]
  - Disorientation [Unknown]
